FAERS Safety Report 24674276 (Version 1)
Quarter: 2024Q4

REPORT INFORMATION
  Report Type: Spontaneous
  Country: US (occurrence: US)
  Receive Date: 20241128
  Receipt Date: 20241128
  Transmission Date: 20250115
  Serious: Yes (Hospitalization)
  Sender: DR REDDYS
  Company Number: None

PATIENT
  Age: 70 Year
  Sex: Male

DRUGS (2)
  1. HEPARIN [Suspect]
     Active Substance: HEPARIN SODIUM
     Indication: Atrial fibrillation
  2. HEPARIN [Suspect]
     Active Substance: HEPARIN SODIUM
     Indication: Hypotension

REACTIONS (2)
  - Hyperkalaemia [Recovering/Resolving]
  - Hypoaldosteronism [Recovering/Resolving]
